FAERS Safety Report 8607775-6 (Version None)
Quarter: 2012Q3

REPORT INFORMATION
  Report Type: 
  Country: None (occurrence: None)
  Receive Date: 20120821
  Receipt Date: 20120816
  Transmission Date: 20120928
  Serious: Yes (Life-Threatening, Hospitalization)
  Sender: FDA-Public Use
  Company Number: PHHY2010CA69487

PATIENT
  Sex: Male

DRUGS (7)
  1. SERTRALINE HYDROCHLORIDE [Concomitant]
     Dosage: 120 MG, QD
     Route: 048
  2. KEMADRIN [Concomitant]
     Dosage: 5 MG, BID
  3. CALCIUM WITH VITAMIN D [Concomitant]
  4. DOCUSATE [Concomitant]
  5. ZYPREXA [Concomitant]
     Dosage: 30 MG
  6. UROMAX [Concomitant]
  7. CLOZARIL [Suspect]
     Indication: SCHIZOPHRENIA
     Route: 048
     Dates: start: 20100810, end: 20101014

REACTIONS (7)
  - FEBRILE NEUTROPENIA [None]
  - PYREXIA [None]
  - AGRANULOCYTOSIS [None]
  - ANAEMIA [None]
  - WHITE BLOOD CELL COUNT DECREASED [None]
  - NEUTROPHIL COUNT DECREASED [None]
  - BONE MARROW FAILURE [None]
